FAERS Safety Report 5053563-X (Version None)
Quarter: 2006Q3

REPORT INFORMATION
  Report Type: 
  Country: None (occurrence: None)
  Receive Date: 20060718
  Receipt Date: 20060518
  Transmission Date: 20061208
  Serious: Yes (Congenital Anomaly, Other)
  Sender: FDA-Public Use
  Company Number: US-BRISTOL-MYERS SQUIBB COMPANY-13383690

PATIENT
  Sex: Male
  Weight: 3 kg

DRUGS (10)
  1. REYATAZ [Suspect]
     Dosage: ONGOING AT CONCEPTION
     Route: 064
     Dates: end: 20050330
  2. NORVIR [Suspect]
     Dosage: ONGOING AT CONCEPTION
     Route: 064
     Dates: end: 20050330
  3. TRUVADA [Suspect]
     Dosage: ONGOING AT CONCEPTION
     Route: 064
     Dates: start: 20040316, end: 20050330
  4. KALETRA [Suspect]
     Route: 064
     Dates: start: 20050330, end: 20050525
  5. TRIZIVIR [Suspect]
     Route: 064
     Dates: start: 20050330, end: 20050525
  6. VIRACEPT [Suspect]
     Route: 064
     Dates: start: 20050603, end: 20051103
  7. COMBIVIR [Suspect]
     Route: 064
     Dates: start: 20050603, end: 20051103
  8. RETROVIR [Suspect]
     Dosage: INCREASED AFTER 200 MG/DAY LOADING DOSE TO 400 MG/DAY
     Route: 064
     Dates: start: 20051103, end: 20051103
  9. FOLATE [Concomitant]
     Route: 064
  10. TRIMETHOPRIM + SULFAMETHOXAZOLE [Concomitant]
     Route: 064

REACTIONS (5)
  - CONVULSION [None]
  - DEVELOPMENTAL DELAY [None]
  - HYPOTONIA [None]
  - PREGNANCY [None]
  - TRISOMY 15 [None]
